FAERS Safety Report 18067290 (Version 1)
Quarter: 2020Q3

REPORT INFORMATION
  Report Type: Spontaneous
  Country: GB (occurrence: GB)
  Receive Date: 20200724
  Receipt Date: 20200724
  Transmission Date: 20201103
  Serious: Yes (Other)
  Sender: FDA-Public Use
  Company Number: GB-MYLANLABS-2020M1066783

PATIENT
  Age: 49 Year
  Sex: Male
  Weight: 124 kg

DRUGS (11)
  1. VENTOLIN [Concomitant]
     Active Substance: ALBUTEROL SULFATE
     Dosage: 2 DOSAGE FORM, PRN
     Route: 055
     Dates: start: 20200506, end: 20200603
  2. PREGABALIN. [Concomitant]
     Active Substance: PREGABALIN
     Dosage: 3 DOSAGE FORM, QD
     Dates: start: 20191018, end: 20200527
  3. FAMOTIDINE. [Concomitant]
     Active Substance: FAMOTIDINE
     Dosage: 20 MILLIGRAM, QD (EACH NIGHT)
     Dates: start: 20200522, end: 20200619
  4. RANITIDINE. [Concomitant]
     Active Substance: RANITIDINE
     Dosage: 2 DOSAGE FORM, QD
     Dates: start: 20200203, end: 20200630
  5. ACIDEX                             /01521901/ [Concomitant]
     Active Substance: CALCIUM CARBONATE\SODIUM ALGINATE\SODIUM BICARBONATE
     Dosage: 40 MILLILITER, QD (FOR REFLUX UNTIL RANITI)
     Dates: start: 20200618, end: 20200630
  6. TRAMADOL. [Concomitant]
     Active Substance: TRAMADOL
     Dosage: UNK (1?2 FOUR TIMES DAILY WHEN REQUIRED)
     Dates: start: 20200317
  7. COLECALCIFEROL [Concomitant]
     Active Substance: CHOLECALCIFEROL
     Dosage: UNK (USE AS DIRECTED)
     Dates: start: 20200203
  8. CIMETIDINE [Suspect]
     Active Substance: CIMETIDINE
     Indication: PRODUCT USED FOR UNKNOWN INDICATION
     Dosage: 400 MILLIGRAM, QD
     Dates: start: 20200625
  9. CALCIUM CARBONATE. [Concomitant]
     Active Substance: CALCIUM CARBONATE
     Dosage: 3 DOSAGE FORM, QD (IN THE MORNING)
     Dates: start: 20191018
  10. RAMIPRIL. [Concomitant]
     Active Substance: RAMIPRIL
     Dosage: 1 DOSAGE FORM, QD
     Dates: start: 20200114
  11. OMEPRAZOLE. [Concomitant]
     Active Substance: OMEPRAZOLE
     Dosage: UNK (2.5 ? 5MLS ONCE A DAY)
     Dates: start: 20200615

REACTIONS (2)
  - Dyspnoea [Recovering/Resolving]
  - Palpitations [Unknown]

NARRATIVE: CASE EVENT DATE: 20200702
